FAERS Safety Report 9302094 (Version 4)
Quarter: 2013Q2

REPORT INFORMATION
  Report Type: Spontaneous
  Country: AU (occurrence: AU)
  Receive Date: 20130521
  Receipt Date: 20130611
  Transmission Date: 20140414
  Serious: Yes (Death, Other)
  Sender: FDA-Public Use
  Company Number: AU-B.I. PHARMACEUTICALS,INC./RIDGEFIELD-2013-AU-00600AU

PATIENT
  Sex: Male

DRUGS (7)
  1. PRADAXA [Suspect]
     Indication: CEREBROVASCULAR ACCIDENT PROPHYLAXIS
     Dosage: 300 MG
     Dates: start: 20120529
  2. PRADAXA [Suspect]
     Indication: ATRIAL FIBRILLATION
  3. DUROGESIC [Concomitant]
     Indication: OESOPHAGEAL CANCER METASTATIC
  4. MOVICOL [Concomitant]
  5. VITAMIN B12 [Concomitant]
  6. SOMAC [Concomitant]
  7. PANADOL OSTEO [Concomitant]
     Indication: OESOPHAGEAL CANCER METASTATIC

REACTIONS (2)
  - Metastases to lung [Fatal]
  - Malignant pleural effusion [Fatal]
